FAERS Safety Report 5811397-X (Version None)
Quarter: 2008Q3

REPORT INFORMATION
  Report Type: 
  Country: None (occurrence: None)
  Receive Date: 20080714
  Receipt Date: 20080702
  Transmission Date: 20090109
  Serious: Yes (Other)
  Sender: FDA-Public Use
  Company Number: 2008017838

PATIENT

DRUGS (5)
  1. CETIRIZINE HCL [Suspect]
     Indication: HYPERSENSITIVITY
     Dosage: PLACENTAL
     Route: 064
  2. CODEINE SUL TAB [Suspect]
     Dosage: PLACENTAL
     Route: 064
  3. PROPICILLIN (PROPICILLIN) [Concomitant]
  4. PROPYPPHENAZONE (PROPYPHENAZONE) [Concomitant]
  5. DROFENINE (DROFENINE) [Concomitant]

REACTIONS (3)
  - DRUG EXPOSURE DURING PREGNANCY [None]
  - HYPOSPADIAS [None]
  - MATERNAL DRUGS AFFECTING FOETUS [None]
